FAERS Safety Report 8267860-8 (Version None)
Quarter: 2012Q2

REPORT INFORMATION
  Report Type: 
  Country: None (occurrence: None)
  Receive Date: 20120404
  Receipt Date: 20120327
  Transmission Date: 20120825
  Serious: Yes (Other)
  Sender: FDA-Public Use
  Company Number: 2012MA004284

PATIENT
  Age: 35 Year
  Sex: Female

DRUGS (3)
  1. DICLOFENAC SODIUM [Concomitant]
  2. TEMAZEPAM [Concomitant]
  3. FLUOXETINE [Suspect]
     Indication: PRODUCT USED FOR UNKNOWN INDICATION
     Dosage: 40 MG;QD;PO
     Route: 048
     Dates: start: 20120225, end: 20120228

REACTIONS (3)
  - PRODUCT SUBSTITUTION ISSUE [None]
  - EMOTIONAL DISORDER [None]
  - AFFECTIVE DISORDER [None]
